FAERS Safety Report 8846807 (Version 1)
Quarter: 2012Q4

REPORT INFORMATION
  Report Type: Spontaneous
  Country: US (occurrence: None)
  Receive Date: 20121016
  Receipt Date: 20121016
  Transmission Date: 20130627
  Serious: Yes (Other)
  Sender: FDA-Public Use
  Company Number: 2012P1060716

PATIENT
  Age: 51 Year
  Sex: Female

DRUGS (1)
  1. LINDANE [Suspect]
     Indication: SCABIES

REACTIONS (5)
  - Alopecia [None]
  - Peripheral coldness [None]
  - Hypoaesthesia [None]
  - Paralysis [None]
  - Mental impairment [None]
